FAERS Safety Report 7118746-3 (Version None)
Quarter: 2010Q4

REPORT INFORMATION
  Report Type: 
  Country: None (occurrence: None)
  Receive Date: 20101123
  Receipt Date: 20101115
  Transmission Date: 20110411
  Serious: Yes (Life-Threatening, Hospitalization)
  Sender: FDA-Public Use
  Company Number: JP-JNJFOC-20101106174

PATIENT
  Age: 36 Year
  Sex: Male
  Weight: 53 kg

DRUGS (3)
  1. REMICADE [Suspect]
     Indication: ANKYLOSING SPONDYLITIS
     Dosage: 2ND INFUSION (DELAYED DUE TO PATIENT SCHEDULE)
     Route: 042
  2. REMICADE [Suspect]
     Dosage: FIRST INFUSION
     Route: 042
  3. AZULFIDINE [Concomitant]
     Route: 048

REACTIONS (4)
  - ANAPHYLACTIC SHOCK [None]
  - INFUSION RELATED REACTION [None]
  - JOINT ANKYLOSIS [None]
  - VENTRICULAR TACHYCARDIA [None]
